FAERS Safety Report 23191529 (Version 2)
Quarter: 2024Q1

REPORT INFORMATION
  Report Type: Spontaneous
  Country: GR (occurrence: GR)
  Receive Date: 20231116
  Receipt Date: 20240110
  Transmission Date: 20240410
  Serious: No
  Sender: FDA-Public Use
  Company Number: GR-PFIZER INC-PV202300182616

PATIENT
  Age: 12 Year
  Sex: Male
  Weight: 45 kg

DRUGS (4)
  1. GENOTROPIN [Suspect]
     Active Substance: SOMATROPIN
     Indication: Body height decreased
     Dosage: 1,4MG AND 1,6MG ALTERNATE DATES WITHOUT DAY-OFF
     Route: 058
     Dates: start: 20230407
  2. GENOTROPIN [Suspect]
     Active Substance: SOMATROPIN
     Indication: Hereditary hypophosphataemic rickets
  3. CRYSVITA [Concomitant]
     Active Substance: BUROSUMAB-TWZA
     Dosage: EVERY 15 DAYS
  4. TRIPTORELIN [Concomitant]
     Active Substance: TRIPTORELIN
     Dosage: 1 INJECTION EVERY 3 MONTHS

REACTIONS (4)
  - Drug dose omission by device [Unknown]
  - Device breakage [Unknown]
  - Wrong technique in device usage process [Unknown]
  - Off label use [Unknown]
